FAERS Safety Report 6075785-1 (Version None)
Quarter: 2009Q1

REPORT INFORMATION
  Report Type: 
  Country: None (occurrence: None)
  Receive Date: 20090212
  Receipt Date: 20090204
  Transmission Date: 20090719
  Serious: Yes (Other)
  Sender: FDA-Public Use
  Company Number: US-JNJFOC-20090201428

PATIENT
  Sex: Male

DRUGS (1)
  1. TOPAMAX [Suspect]
     Indication: PAIN PROPHYLAXIS
     Route: 048

REACTIONS (3)
  - BACK PAIN [None]
  - COLD SWEAT [None]
  - FLANK PAIN [None]
